FAERS Safety Report 6355672-1 (Version None)
Quarter: 2009Q3

REPORT INFORMATION
  Report Type: 
  Country: None (occurrence: None)
  Receive Date: 20090910
  Receipt Date: 20090827
  Transmission Date: 20100115
  Serious: Yes (Other)
  Sender: FDA-Public Use
  Company Number: ADR18602009

PATIENT
  Age: 65 Year
  Sex: Female

DRUGS (4)
  1. SIMVASTATIN [Suspect]
     Indication: TYPE IIA HYPERLIPIDAEMIA
     Dosage: 80 MG ORAL
     Route: 048
     Dates: start: 20090328, end: 20090726
  2. DICLOFENAC [Concomitant]
  3. RANITIDINE [Concomitant]
  4. TAMSULOSIN HCL [Concomitant]

REACTIONS (4)
  - CONDITION AGGRAVATED [None]
  - GOUT [None]
  - LOSS OF EMPLOYMENT [None]
  - NO THERAPEUTIC RESPONSE [None]
